FAERS Safety Report 13851033 (Version 2)
Quarter: 2017Q3

REPORT INFORMATION
  Report Type: Report from Study
  Country: None (occurrence: RO)
  Receive Date: 20170810
  Receipt Date: 20170811
  Transmission Date: 20171127
  Serious: Yes (Death, Hospitalization, Other)
  Sender: FDA-Public Use
  Company Number: RO-ABBVIE-17K-135-2062094-00

PATIENT
  Age: 73 Year
  Sex: Female

DRUGS (3)
  1. CONTROLOC [Concomitant]
     Active Substance: PANTOPRAZOLE SODIUM
     Indication: HYPERCHLORHYDRIA
     Route: 048
     Dates: start: 201703
  2. DUODOPA [Suspect]
     Active Substance: CARBIDOPA\LEVODOPA
     Indication: PARKINSON^S DISEASE
     Dosage: 16H??MD-9??CR-4??ED 1.5
     Route: 050
     Dates: start: 20150904, end: 20170808
  3. LACTULOSE. [Concomitant]
     Active Substance: LACTULOSE
     Indication: CONSTIPATION
     Dosage: 2*5ML
     Route: 048
     Dates: start: 2014

REACTIONS (17)
  - Hepatic failure [Fatal]
  - Stoma site hypergranulation [Recovered/Resolved]
  - Postoperative renal failure [Fatal]
  - Gastrointestinal haemorrhage [Recovered/Resolved]
  - Dehydration [Recovered/Resolved]
  - Pyrexia [Unknown]
  - Postoperative adhesion [Not Recovered/Not Resolved]
  - Internal haemorrhage [Recovered/Resolved]
  - Petechiae [Not Recovered/Not Resolved]
  - Flatulence [Recovered/Resolved]
  - Intestinal ischaemia [Unknown]
  - Haematemesis [Not Recovered/Not Resolved]
  - Coma [Not Recovered/Not Resolved]
  - Urinary tract infection [Recovered/Resolved]
  - Anuria [Not Recovered/Not Resolved]
  - Hallucination [Not Recovered/Not Resolved]
  - Cardio-respiratory arrest [Fatal]

NARRATIVE: CASE EVENT DATE: 201702
